FAERS Safety Report 24183425 (Version 1)
Quarter: 2024Q3

REPORT INFORMATION
  Report Type: Spontaneous
  Country: CA (occurrence: CA)
  Receive Date: 20240807
  Receipt Date: 20240807
  Transmission Date: 20241016
  Serious: Yes (Hospitalization)
  Sender: PFIZER
  Company Number: CA-PFIZER INC-202400228232

PATIENT
  Age: 33 Year
  Sex: Female

DRUGS (2)
  1. DINOPROSTONE [Suspect]
     Active Substance: DINOPROSTONE
     Indication: Induction of cervix ripening
     Dosage: 10 MG, 1 EVERY 1 DAY
     Route: 067
  2. DOXYLAMINE SUCCINATE AND PYRIDOXINE HYDROCHLORIDE [Concomitant]
     Active Substance: DOXYLAMINE SUCCINATE\PYRIDOXINE HYDROCHLORIDE
     Indication: Pregnancy
     Dosage: UNK

REACTIONS (2)
  - Incorrect product administration duration [Unknown]
  - Uterine tachysystole [Recovered/Resolved]
